FAERS Safety Report 8446943-3 (Version None)
Quarter: 2012Q2

REPORT INFORMATION
  Report Type: 
  Country: None (occurrence: None)
  Receive Date: 20120613
  Receipt Date: 20120613
  Transmission Date: 20120825
  Serious: Yes (Life-Threatening, Hospitalization, Disabling)
  Sender: FDA-Public Use
  Company Number: None

PATIENT
  Age: 43 Year
  Sex: Male
  Weight: 99.7913 kg

DRUGS (6)
  1. LYRICA [Suspect]
     Indication: CONCUSSION
     Dosage: 75 MG, 3X/DAY, PO
     Route: 048
     Dates: start: 20090710, end: 20100610
  2. LYRICA [Suspect]
     Indication: PAIN
     Dosage: 75 MG, 3X/DAY, PO
     Route: 048
     Dates: start: 20090710, end: 20100610
  3. LYRICA [Suspect]
     Indication: EXPOSURE TO TOXIC AGENT
     Dosage: 75 MG, 3X/DAY, PO
     Route: 048
     Dates: start: 20090710, end: 20100610
  4. LYRICA [Suspect]
     Indication: CONCUSSION
     Dosage: 75 MG, 3X/DAY, PO
     Route: 048
     Dates: start: 20110712, end: 20110718
  5. LYRICA [Suspect]
     Indication: PAIN
     Dosage: 75 MG, 3X/DAY, PO
     Route: 048
     Dates: start: 20110712, end: 20110718
  6. LYRICA [Suspect]
     Indication: EXPOSURE TO TOXIC AGENT
     Dosage: 75 MG, 3X/DAY, PO
     Route: 048
     Dates: start: 20110712, end: 20110718

REACTIONS (10)
  - VISUAL IMPAIRMENT [None]
  - DYSGEUSIA [None]
  - IMPAIRED WORK ABILITY [None]
  - PHOTOSENSITIVITY REACTION [None]
  - ERYTHEMA MULTIFORME [None]
  - VISUAL ACUITY REDUCED [None]
  - MENTAL IMPAIRMENT [None]
  - FEELING ABNORMAL [None]
  - HYPERAESTHESIA [None]
  - MEMORY IMPAIRMENT [None]
